FAERS Safety Report 22042584 (Version 1)
Quarter: 2023Q1

REPORT INFORMATION
  Report Type: Spontaneous
  Country: US (occurrence: US)
  Receive Date: 20230228
  Receipt Date: 20230228
  Transmission Date: 20230418
  Serious: Yes (Other)
  Sender: FDA-Public Use
  Company Number: US-SUN PHARMACEUTICAL INDUSTRIES LTD-2023R1-380664

PATIENT
  Age: 52 Year
  Sex: Male

DRUGS (2)
  1. TEMOZOLOMIDE [Suspect]
     Active Substance: TEMOZOLOMIDE
     Indication: Glioblastoma
     Dosage: 75 MILLIGRAM/SQ. METER, DAILY
     Route: 065
  2. TEMOZOLOMIDE [Suspect]
     Active Substance: TEMOZOLOMIDE
     Dosage: 150 MILLIGRAM/SQ. METER/ DAY 1-5 Q 28 D/6 CYCLES
     Route: 065

REACTIONS (2)
  - Therapy non-responder [Unknown]
  - Disease progression [Unknown]
